FAERS Safety Report 7754516-0 (Version None)
Quarter: 2011Q3

REPORT INFORMATION
  Report Type: 
  Country: None (occurrence: None)
  Receive Date: 20110915
  Receipt Date: 20110908
  Transmission Date: 20111222
  Serious: Yes (Other)
  Sender: FDA-Public Use
  Company Number: US-US-EMD SERONO, INC.-7082035

PATIENT
  Sex: Female
  Weight: 47 kg

DRUGS (2)
  1. REBIF [Suspect]
     Indication: MULTIPLE SCLEROSIS
     Route: 058
     Dates: start: 20090916
  2. NEURONTIN [Concomitant]
     Indication: PAIN IN EXTREMITY

REACTIONS (6)
  - HAEMATOCRIT DECREASED [None]
  - INJECTION SITE ERYTHEMA [None]
  - VAGINAL HAEMORRHAGE [None]
  - HAEMOGLOBIN DECREASED [None]
  - MULTIPLE SCLEROSIS RELAPSE [None]
  - DYSPNOEA [None]
